FAERS Safety Report 4544536-1 (Version None)
Quarter: 2005Q1

REPORT INFORMATION
  Report Type: 
  Country: None (occurrence: None)
  Receive Date: 20050104
  Receipt Date: 20030912
  Transmission Date: 20050727
  Serious: No
  Sender: FDA-Public Use
  Company Number: 6078

PATIENT
  Age: 47 Year
  Sex: Female

DRUGS (4)
  1. CYCLOPHOPSHAMIDE [Suspect]
     Indication: LYMPHOMA
     Dosage: 1470 MG PER CYCLE, IV
     Route: 042
     Dates: start: 20030709
  2. VINCRISTINE [Suspect]
     Indication: LYMPHOMA
     Dosage: 2 MG PER CYCLE, IV
     Route: 042
     Dates: start: 20030709
  3. PREDNISOLONE [Concomitant]
  4. METOCLOPRAMIDE [Concomitant]

REACTIONS (5)
  - PHOTOSENSITIVITY REACTION [None]
  - PRURITUS [None]
  - RASH VESICULAR [None]
  - URTICARIA GENERALISED [None]
  - VOMITING [None]
